FAERS Safety Report 11399396 (Version 4)
Quarter: 2016Q1

REPORT INFORMATION
  Report Type: Report from Study
  Country: US (occurrence: US)
  Receive Date: 20150820
  Receipt Date: 20160106
  Transmission Date: 20160525
  Serious: Yes (Other)
  Sender: FDA-Public Use
  Company Number: US-ALEXION-A201503051

PATIENT
  Sex: Female

DRUGS (2)
  1. PROMACTA [Concomitant]
     Active Substance: ELTROMBOPAG OLAMINE
     Indication: PRODUCT USED FOR UNKNOWN INDICATION
     Dosage: UNK
     Route: 065
  2. SOLIRIS [Suspect]
     Active Substance: ECULIZUMAB
     Indication: PAROXYSMAL NOCTURNAL HAEMOGLOBINURIA
     Dosage: UNK
     Route: 042

REACTIONS (11)
  - Platelet count abnormal [Recovering/Resolving]
  - Pain [Unknown]
  - Multiple sclerosis [Unknown]
  - Blood lactate dehydrogenase increased [Recovering/Resolving]
  - Drug ineffective [Unknown]
  - Fatigue [Unknown]
  - Blood lactate dehydrogenase decreased [Unknown]
  - Asthenia [Unknown]
  - Muscle spasms [Unknown]
  - Haemoglobin decreased [Recovering/Resolving]
  - Reticulocyte count increased [Unknown]

NARRATIVE: CASE EVENT DATE: 20150805
